FAERS Safety Report 7686503-5 (Version None)
Quarter: 2011Q3

REPORT INFORMATION
  Report Type: 
  Country: None (occurrence: None)
  Receive Date: 20110816
  Receipt Date: 20110802
  Transmission Date: 20111222
  Serious: No
  Sender: FDA-Public Use
  Company Number: US-B.I. PHARMACEUTICALS,INC./RIDGEFIELD-2011-BP-19020BP

PATIENT
  Sex: Female

DRUGS (6)
  1. ACYCLOVIR [Concomitant]
     Indication: INFECTION PROPHYLAXIS
     Dosage: 800 MG
     Route: 048
  2. IMODIUM [Concomitant]
     Indication: DIARRHOEA
     Route: 048
  3. PRADAXA [Suspect]
     Indication: ATRIAL FIBRILLATION
     Dosage: 300 MG
     Route: 048
     Dates: start: 20110601
  4. METROPOLOL [Concomitant]
     Indication: ATRIAL FIBRILLATION
     Dosage: 50 MG
     Route: 048
  5. METROPOLOL [Concomitant]
     Indication: HYPERTENSION
     Dosage: 50 MG
     Route: 048
  6. RESTASIS [Concomitant]
     Indication: DRY EYE

REACTIONS (2)
  - URINARY TRACT INFECTION [None]
  - CHROMATURIA [None]
